FAERS Safety Report 8970414 (Version 1)
Quarter: 2012Q4

REPORT INFORMATION
  Report Type: 
  Country: US (occurrence: US)
  Receive Date: 20121218
  Receipt Date: 20121218
  Transmission Date: 20130627
  Serious: Yes (Other)
  Sender: FDA-Public Use
  Company Number: US-BRISTOL-MYERS SQUIBB COMPANY-16495905

PATIENT
  Age: 51 Year
  Sex: Female

DRUGS (8)
  1. ABILIFY [Suspect]
     Indication: DEPRESSION
     Dosage: prev dose : 10 mg,Dose reduced to 5mg on 2Dec2011.
     Route: 048
     Dates: start: 20101217, end: 20120104
  2. EFFEXOR [Concomitant]
  3. KLONOPIN [Concomitant]
     Route: 048
  4. TRAZODONE HCL [Concomitant]
  5. TIZANIDINE HCL [Concomitant]
  6. TRILIPIX [Concomitant]
  7. TOPAMAX [Concomitant]
  8. NUCYNTA [Concomitant]

REACTIONS (1)
  - Tardive dyskinesia [Not Recovered/Not Resolved]
